FAERS Safety Report 17911644 (Version 2)
Quarter: 2020Q2

REPORT INFORMATION
  Report Type: Spontaneous
  Country: US (occurrence: US)
  Receive Date: 20200618
  Receipt Date: 20200629
  Transmission Date: 20200714
  Serious: No
  Sender: FDA-Public Use
  Company Number: US-PFIZER INC-2020235490

PATIENT
  Age: 60 Year
  Sex: Female
  Weight: 70 kg

DRUGS (1)
  1. IBRANCE [Suspect]
     Active Substance: PALBOCICLIB
     Indication: BREAST CANCER METASTATIC
     Dosage: 125 MG, CYCLIC(125MG 1 TABLET BY MOUTH FOR 21 DAYS THEN OFF FOR 7)
     Route: 048
     Dates: start: 2017

REACTIONS (3)
  - Oesophageal disorder [Unknown]
  - Dysphagia [Unknown]
  - Condition aggravated [Unknown]
